FAERS Safety Report 15010107 (Version 4)
Quarter: 2018Q3

REPORT INFORMATION
  Report Type: Spontaneous
  Country: US (occurrence: US)
  Receive Date: 20180614
  Receipt Date: 20180827
  Transmission Date: 20181010
  Serious: No
  Sender: FDA-Public Use
  Company Number: US-PFIZER INC-2018241667

PATIENT
  Age: 24 Year
  Sex: Female

DRUGS (5)
  1. BUSPIRONE [Suspect]
     Active Substance: BUSPIRONE HYDROCHLORIDE
     Dosage: UNK
  2. CEFZIL [Suspect]
     Active Substance: CEFPROZIL
     Dosage: UNK
  3. NORCO [Suspect]
     Active Substance: ACETAMINOPHEN\HYDROCODONE BITARTRATE
  4. ONDANSETRON [Suspect]
     Active Substance: ONDANSETRON
     Dosage: UNK
  5. CEFPROZIL. [Suspect]
     Active Substance: CEFPROZIL
     Dosage: UNK

REACTIONS (1)
  - Drug hypersensitivity [Unknown]
